FAERS Safety Report 17007820 (Version 3)
Quarter: 2020Q1

REPORT INFORMATION
  Report Type: Report from Study
  Country: JP (occurrence: JP)
  Receive Date: 20191108
  Receipt Date: 20200319
  Transmission Date: 20200409
  Serious: Yes (Hospitalization)
  Sender: FDA-Public Use
  Company Number: JP-ROCHE-2463295

PATIENT
  Age: 73 Year
  Sex: Female
  Weight: 47 kg

DRUGS (4)
  1. OBINUTUZUMAB. [Suspect]
     Active Substance: OBINUTUZUMAB
     Route: 041
     Dates: start: 20190924, end: 20190924
  2. OBINUTUZUMAB. [Suspect]
     Active Substance: OBINUTUZUMAB
     Indication: B-CELL LYMPHOMA
     Route: 041
     Dates: start: 20190909, end: 20190909
  3. OBINUTUZUMAB. [Suspect]
     Active Substance: OBINUTUZUMAB
     Route: 041
     Dates: start: 20190917, end: 20190917
  4. TREAKISYM [Suspect]
     Active Substance: BENDAMUSTINE HYDROCHLORIDE
     Indication: B-CELL LYMPHOMA
     Dosage: TWICE/FOUR WEEKS
     Route: 041
     Dates: start: 20190910, end: 20190911

REACTIONS (1)
  - Cytomegalovirus hepatitis [Recovering/Resolving]

NARRATIVE: CASE EVENT DATE: 20191001
